FAERS Safety Report 9706662 (Version 2)
Quarter: 2013Q4

REPORT INFORMATION
  Report Type: Report from Study
  Country: CA (occurrence: CA)
  Receive Date: 20131125
  Receipt Date: 20131125
  Transmission Date: 20140711
  Serious: Yes (Other)
  Sender: FDA-Public Use
  Company Number: CA-JNJFOC-20130900095

PATIENT
  Sex: Female
  Weight: 69 kg

DRUGS (5)
  1. REMICADE [Suspect]
     Indication: CROHN^S DISEASE
     Route: 042
     Dates: start: 20130212
  2. METHOTREXATE [Concomitant]
     Route: 065
  3. PREDNISONE [Concomitant]
     Route: 048
  4. LOSEC [Concomitant]
     Route: 065
  5. PREMARIN [Concomitant]
     Route: 048

REACTIONS (4)
  - Cataract [Unknown]
  - Oral herpes [Unknown]
  - Haemoglobin decreased [Unknown]
  - Vision blurred [Not Recovered/Not Resolved]
